FAERS Safety Report 22138704 (Version 1)
Quarter: 2023Q1

REPORT INFORMATION
  Report Type: Report from Study
  Country: DE (occurrence: DE)
  Receive Date: 20230327
  Receipt Date: 20230327
  Transmission Date: 20230417
  Serious: Yes (Life-Threatening, Hospitalization)
  Sender: FDA-Public Use
  Company Number: DE-JNJFOC-20180411126

PATIENT
  Age: 60 Year
  Sex: Female

DRUGS (30)
  1. IBRUTINIB [Suspect]
     Active Substance: IBRUTINIB
     Indication: Mantle cell lymphoma
     Route: 048
     Dates: start: 20180122, end: 20180209
  2. IBRUTINIB [Suspect]
     Active Substance: IBRUTINIB
     Indication: Mantle cell lymphoma
     Route: 048
     Dates: start: 20180309, end: 20180327
  3. IBRUTINIB [Suspect]
     Active Substance: IBRUTINIB
     Indication: Mantle cell lymphoma
     Route: 048
     Dates: start: 20180329
  4. RITUXIMAB [Concomitant]
     Active Substance: RITUXIMAB
     Indication: Mantle cell lymphoma
     Dosage: DOSAGE FORM: UNSPECIFIED
     Route: 065
     Dates: start: 20180118, end: 20180126
  5. RITUXIMAB [Concomitant]
     Active Substance: RITUXIMAB
     Indication: Mantle cell lymphoma
     Dosage: DOSAGE FORM: UNSPECIFIED
     Route: 065
     Dates: start: 20180215, end: 20180219
  6. RITUXIMAB [Concomitant]
     Active Substance: RITUXIMAB
     Indication: Mantle cell lymphoma
     Dosage: DOSAGE FORM: UNSPECIFIED
     Route: 065
     Dates: start: 20180308, end: 20180313
  7. RITUXIMAB [Concomitant]
     Active Substance: RITUXIMAB
     Indication: Mantle cell lymphoma
     Dosage: DOSAGE FORM: UNSPECIFIED
     Route: 065
     Dates: start: 20180329, end: 20180402
  8. CYCLOPHOSPHAMIDE [Concomitant]
     Active Substance: CYCLOPHOSPHAMIDE
     Indication: Mantle cell lymphoma
     Dosage: DOSAGE FORM: UNSPECIFIED
     Route: 065
     Dates: start: 20180118, end: 20180126
  9. CYCLOPHOSPHAMIDE [Concomitant]
     Active Substance: CYCLOPHOSPHAMIDE
     Indication: Mantle cell lymphoma
     Dosage: DOSAGE FORM: UNSPECIFIED
     Route: 065
     Dates: start: 20180308, end: 20180313
  10. DOXORUBICIN [Concomitant]
     Active Substance: DOXORUBICIN
     Indication: Mantle cell lymphoma
     Dosage: DOSAGE FORM: UNSPECIFIED
     Route: 065
     Dates: start: 20180118, end: 20180126
  11. DOXORUBICIN [Concomitant]
     Active Substance: DOXORUBICIN
     Indication: Mantle cell lymphoma
     Dosage: DOSAGE FORM: UNSPECIFIED
     Route: 065
     Dates: start: 20180308, end: 20180313
  12. PREDNISOLONE [Concomitant]
     Active Substance: PREDNISOLONE
     Indication: Mantle cell lymphoma
     Dosage: DOSAGE FORM: UNSPECIFIED
     Route: 065
     Dates: start: 20180118, end: 20180126
  13. PREDNISOLONE [Concomitant]
     Active Substance: PREDNISOLONE
     Indication: Mantle cell lymphoma
     Dosage: DOSAGE FORM: UNSPECIFIED
     Route: 065
     Dates: start: 20180308, end: 20180313
  14. DEXAMETHASONE [Concomitant]
     Active Substance: DEXAMETHASONE
     Indication: Mantle cell lymphoma
     Dosage: DOSAGE FORM: UNSPECIFIED
     Route: 065
     Dates: start: 20180215, end: 20180219
  15. DEXAMETHASONE [Concomitant]
     Active Substance: DEXAMETHASONE
     Indication: Mantle cell lymphoma
     Dosage: DOSAGE FORM: UNSPECIFIED
     Route: 065
     Dates: start: 20180329, end: 20180402
  16. CYTARABINE [Concomitant]
     Active Substance: CYTARABINE
     Indication: Mantle cell lymphoma
     Dosage: DOSAGE FORM: UNSPECIFIED
     Route: 065
     Dates: start: 20180329, end: 20180402
  17. CISPLATIN [Concomitant]
     Active Substance: CISPLATIN
     Indication: Mantle cell lymphoma
     Dosage: DOSAGE FORM: UNSPECIFIED
     Route: 065
     Dates: start: 20180215, end: 20180219
  18. CISPLATIN [Concomitant]
     Active Substance: CISPLATIN
     Indication: Mantle cell lymphoma
     Dosage: DOSAGE FORM: UNSPECIFIED
     Route: 065
     Dates: start: 20180329, end: 20180402
  19. VINCRISTINE [Concomitant]
     Active Substance: VINCRISTINE
     Indication: Mantle cell lymphoma
     Dosage: DOSAGE FORM: UNSPECIFIED
     Route: 065
     Dates: start: 20180118, end: 20180126
  20. VINCRISTINE [Concomitant]
     Active Substance: VINCRISTINE
     Indication: Mantle cell lymphoma
     Dosage: DOSAGE FORM: UNSPECIFIED
     Route: 065
     Dates: start: 20180308, end: 20180313
  21. NEULASTA [Concomitant]
     Active Substance: PEGFILGRASTIM
     Indication: Prophylaxis
     Dosage: DOSAGE FORM: UNSPECIFIED
     Route: 065
     Dates: start: 20180220
  22. LOPERAMIDE [Concomitant]
     Active Substance: LOPERAMIDE
     Indication: Diarrhoea
     Dosage: DOSAGE FORM: UNSPECIFIED
     Route: 065
     Dates: start: 20180223
  23. ACYCLOVIR [Concomitant]
     Active Substance: ACYCLOVIR
     Indication: Infection prophylaxis
     Dosage: DOSAGE FORM: UNSPECIFIED
     Route: 065
     Dates: start: 20180122
  24. SULFAMETHOXAZOLE\TRIMETHOPRIM [Concomitant]
     Active Substance: SULFAMETHOXAZOLE\TRIMETHOPRIM
     Indication: Infection prophylaxis
     Dosage: DOSAGE FORM: UNSPECIFIED
     Route: 065
     Dates: start: 20180122
  25. ALIZAPRIDE HYDROCHLORIDE [Concomitant]
     Active Substance: ALIZAPRIDE HYDROCHLORIDE
     Indication: Prophylaxis of nausea and vomiting
     Dosage: DOSAGE FORM: UNSPECIFIED
     Route: 065
     Dates: start: 20180221
  26. PANTOPRAZOLE SODIUM [Concomitant]
     Active Substance: PANTOPRAZOLE SODIUM
     Indication: Gastritis prophylaxis
     Dosage: DOSAGE FORM: UNSPECIFIED
     Route: 065
     Dates: start: 20180110
  27. ISOPTO-DEX [Concomitant]
     Indication: Prophylaxis
     Dosage: DOSAGE FORM: UNSPECIFIED
     Route: 065
     Dates: start: 20180217
  28. DIMENHYDRINATE [Concomitant]
     Active Substance: DIMENHYDRINATE
     Indication: Prophylaxis of nausea and vomiting
     Dosage: DOSAGE FORM: UNSPECIFIED
     Route: 065
     Dates: start: 20180219
  29. HYPROMELLOSES [Concomitant]
     Active Substance: HYPROMELLOSES
     Indication: Prophylaxis
     Dosage: DOSAGE FORM: UNSPECIFIED
     Route: 065
     Dates: start: 20180217
  30. MESNA [Concomitant]
     Active Substance: MESNA
     Indication: Prophylaxis
     Dosage: DOSAGE FORM: UNSPECIFIED
     Route: 065
     Dates: start: 20180122

REACTIONS (1)
  - Thrombocytopenia [Recovered/Resolved]

NARRATIVE: CASE EVENT DATE: 20180406
